FAERS Safety Report 9933323 (Version 2)
Quarter: 2014Q1

REPORT INFORMATION
  Report Type: Report from Study
  Country: US (occurrence: US)
  Receive Date: 20140228
  Receipt Date: 20140228
  Transmission Date: 20141002
  Serious: No
  Sender: FDA-Public Use
  Company Number: US-MYLANLABS-2013S1004813

PATIENT
  Age: 36 Year
  Sex: Female
  Weight: 107.5 kg

DRUGS (5)
  1. AMNESTEEM CAPSULES [Suspect]
     Indication: ACNE CYSTIC
     Route: 048
     Dates: start: 20121218, end: 20130123
  2. AMNESTEEM CAPSULES [Suspect]
     Indication: ACNE CYSTIC
     Route: 048
     Dates: start: 20130124, end: 20130223
  3. CLARAVIS [Suspect]
     Indication: ACNE CYSTIC
  4. CYMBALTA [Concomitant]
  5. CONTRACEPTIVE [Concomitant]
     Indication: CONTRACEPTION

REACTIONS (1)
  - Headache [Not Recovered/Not Resolved]
